FAERS Safety Report 24357948 (Version 2)
Quarter: 2024Q4

REPORT INFORMATION
  Report Type: Spontaneous
  Country: AU (occurrence: AU)
  Receive Date: 20240924
  Receipt Date: 20241009
  Transmission Date: 20250115
  Serious: Yes (Other)
  Sender: GRIFOLS
  Company Number: AU-IGSA-BIG0030749

PATIENT
  Age: 10 Year
  Sex: Female
  Weight: 37.3 kg

DRUGS (2)
  1. XEMBIFY [Suspect]
     Active Substance: HUMAN IMMUNOGLOBULIN G
     Indication: Combined immunodeficiency
     Dosage: 4 GRAM, SINGLE
     Route: 058
     Dates: start: 20240713, end: 20240713
  2. XEMBIFY [Suspect]
     Active Substance: HUMAN IMMUNOGLOBULIN G
     Indication: Immunodeficiency common variable
     Dosage: 3 GRAM, Q.WK.
     Route: 058
     Dates: start: 20240921, end: 20240921

REACTIONS (5)
  - Accidental overdose [Recovering/Resolving]
  - Infusion site vesicles [Not Recovered/Not Resolved]
  - Infusion site necrosis [Not Recovered/Not Resolved]
  - Injection site exfoliation [Not Recovered/Not Resolved]
  - Secretion discharge [Not Recovered/Not Resolved]

NARRATIVE: CASE EVENT DATE: 20240713
